FAERS Safety Report 5119955-5 (Version None)
Quarter: 2006Q3

REPORT INFORMATION
  Report Type: 
  Country: None (occurrence: None)
  Receive Date: 20060929
  Receipt Date: 20060919
  Transmission Date: 20061208
  Serious: Yes (Other)
  Sender: FDA-Public Use
  Company Number: 2006113299

PATIENT
  Sex: Male

DRUGS (2)
  1. UNASYN [Suspect]
     Indication: DRUG USE FOR UNKNOWN INDICATION
     Dosage: INTRAVENOUS
     Route: 042
     Dates: start: 20060726, end: 20060726
  2. METILON (METAMIZOLE SODIUM) [Concomitant]

REACTIONS (1)
  - SHOCK [None]
